FAERS Safety Report 6482589-4 (Version None)
Quarter: 2009Q4

REPORT INFORMATION
  Report Type: 
  Country: None (occurrence: None)
  Receive Date: 20091209
  Receipt Date: 20091127
  Transmission Date: 20100525
  Serious: Yes (Other)
  Sender: FDA-Public Use
  Company Number: US-RANBAXY-2009RR-29239

PATIENT
  Age: 16 Year
  Sex: Male

DRUGS (33)
  1. FLUOXETINE [Suspect]
     Indication: ANXIETY
     Dosage: 30 MG, QD
     Route: 048
  2. FLUOXETINE [Suspect]
     Dosage: 40 MG, QD
  3. FLUOXETINE [Suspect]
     Dosage: 50 MG, QD
  4. RISPERIDONE [Suspect]
     Indication: TOURETTE'S DISORDER
     Dosage: 5 MG, UNK
     Route: 048
  5. RISPERIDONE [Suspect]
     Dosage: 2 MG, QD
  6. RISPERIDONE [Suspect]
     Dosage: 0.5 MG, QD
  7. RISPERIDONE [Suspect]
     Dosage: 1 MG, BID
  8. TETRABENAZINE [Suspect]
     Dosage: 37.5 MG, BID
  9. TETRABENAZINE [Suspect]
     Dosage: 12.5 MG, QD
  10. TETRABENAZINE [Suspect]
     Dosage: 37.5 MG, QD
  11. BENZATROPINE [Suspect]
     Indication: TOURETTE'S DISORDER
     Dosage: 0.5 MG, BID
  12. BENZATROPINE [Suspect]
     Dosage: 37.5 MG, QD
  13. ZIPRASIDONE HCL [Suspect]
     Dosage: 80 MG, BID
  14. ARIPIPRAZOLE [Suspect]
     Dosage: 10 MG, BID
  15. CLONAZEPAM [Suspect]
     Dosage: 0.5 MG, BID
  16. CLONAZEPAM [Suspect]
     Dosage: 0.5 MG, TID
  17. CLONAZEPAM [Suspect]
     Dosage: 0.5 MG, QD
  18. TOPIRAMATE [Suspect]
     Indication: INCREASED APPETITE
     Dosage: 75 MG, BID
  19. TOPIRAMATE [Suspect]
     Dosage: 50 MG, BID
  20. MIDAZOLAM HCL [Suspect]
     Route: 042
  21. ZOLPIDEM TARTRATE [Suspect]
     Dosage: 10 MG, BID
  22. ZOLPIDEM TARTRATE [Suspect]
     Dosage: 10 MG, QD
  23. ALPRAZOLAM [Suspect]
     Dosage: 0.25 MG, BID
  24. ALPRAZOLAM [Suspect]
     Dosage: 0.25 MG, QD
  25. FLUPHENAZINE [Suspect]
     Dosage: 3 MG, QD
  26. FLUPHENAZINE [Suspect]
     Dosage: 5 MG, QD
  27. PIMOZIDE [Suspect]
     Dosage: 3 MG, QD
  28. DOCUSATE SODIUM [Concomitant]
     Dosage: 100 MG, QD
     Route: 048
  29. METHYLPREDNISOLONE [Concomitant]
  30. RANITIDINE HYDROCHLORIDE [Concomitant]
     Dosage: 50 MG, TID
  31. DIPHENHYDRAMINE HCL [Concomitant]
  32. DIAZEPAM [Concomitant]
  33. LORAZEPAM [Concomitant]
     Route: 030

REACTIONS (7)
  - BLOOD PROLACTIN INCREASED [None]
  - DEPRESSION [None]
  - DRUG INTERACTION [None]
  - ELECTROCARDIOGRAM QT PROLONGED [None]
  - MUSCULOSKELETAL STIFFNESS [None]
  - SUICIDAL IDEATION [None]
  - WEIGHT INCREASED [None]
